FAERS Safety Report 23056046 (Version 1)
Quarter: 2023Q4

REPORT INFORMATION
  Report Type: Spontaneous
  Country: US (occurrence: None)
  Receive Date: 20231011
  Receipt Date: 20231011
  Transmission Date: 20240110
  Serious: No
  Sender: FDA-Public Use
  Company Number: None

PATIENT
  Sex: Female
  Weight: 65.59 kg

DRUGS (1)
  1. ELOXATIN [Suspect]
     Active Substance: OXALIPLATIN
     Dates: start: 20230925

REACTIONS (12)
  - Dysphonia [None]
  - Infusion related reaction [None]
  - Dysphagia [None]
  - Dyspnoea [None]
  - Muscle spasms [None]
  - Blood potassium decreased [None]
  - Trousseau^s sign [None]
  - Calcium ionised decreased [None]
  - Blood phosphorus decreased [None]
  - Hypersensitivity [None]
  - Dysaesthesia pharynx [None]
  - Blood electrolytes abnormal [None]

NARRATIVE: CASE EVENT DATE: 20230925
